FAERS Safety Report 17186643 (Version 1)
Quarter: 2019Q4

REPORT INFORMATION
  Report Type: Spontaneous
  Country: PT (occurrence: PT)
  Receive Date: 20191220
  Receipt Date: 20191220
  Transmission Date: 20200122
  Serious: Yes (Hospitalization, Other)
  Sender: FDA-Public Use
  Company Number: PT-MYLANLABS-2019M1126493

PATIENT

DRUGS (3)
  1. DESOGESTREL [Concomitant]
     Active Substance: DESOGESTREL
     Indication: PRODUCT USED FOR UNKNOWN INDICATION
     Dosage: 75 MICROGRAM
     Route: 065
  2. TRAZODONE [Concomitant]
     Active Substance: TRAZODONE HYDROCHLORIDE
     Indication: PRODUCT USED FOR UNKNOWN INDICATION
     Dosage: 150 MILLIGRAM
     Route: 065
  3. ALPRAZOLAM. [Suspect]
     Active Substance: ALPRAZOLAM
     Indication: PRODUCT USED FOR UNKNOWN INDICATION
     Dosage: 1 MILLIGRAM, FOUR TIMES/DAY
     Route: 065

REACTIONS (14)
  - Gastroenteritis [Unknown]
  - Generalised tonic-clonic seizure [Unknown]
  - Pyrexia [Unknown]
  - Incoherent [Recovering/Resolving]
  - Drug abuse [Unknown]
  - Withdrawal syndrome [Unknown]
  - Confusional state [Recovering/Resolving]
  - Vomiting [Unknown]
  - Postictal state [Unknown]
  - Delusion [Recovering/Resolving]
  - Epilepsy [Unknown]
  - Tremor [Recovering/Resolving]
  - Myoclonus [Recovering/Resolving]
  - Diarrhoea [Unknown]

NARRATIVE: CASE EVENT DATE: 20160918
